FAERS Safety Report 4386032-0 (Version None)
Quarter: 2004Q2

REPORT INFORMATION
  Report Type: 
  Country: None (occurrence: None)
  Receive Date: 20040610
  Receipt Date: 20040206
  Transmission Date: 20050107
  Serious: No
  Sender: FDA-Public Use
  Company Number: A03200400394

PATIENT
  Age: 50 Year
  Sex: Female

DRUGS (1)
  1. ELOXATIN [Suspect]
     Indication: OVARIAN CANCER
     Dosage: 85 MG Q3W - INTRAVENOUS NOS
     Route: 042
     Dates: start: 20040205, end: 20040205

REACTIONS (2)
  - PAIN IN JAW [None]
  - PHARYNGEAL HYPOAESTHESIA [None]
